FAERS Safety Report 8461107-5 (Version None)
Quarter: 2012Q2

REPORT INFORMATION
  Report Type: 
  Country: None (occurrence: None)
  Receive Date: 20120625
  Receipt Date: 20120611
  Transmission Date: 20120825
  Serious: Yes (Other)
  Sender: FDA-Public Use
  Company Number: ES-PAR PHARMACEUTICAL, INC-2012SCPR004456

PATIENT

DRUGS (4)
  1. FLUOXETINE [Suspect]
     Indication: DEPRESSION
     Dosage: 20 MG, / DAY
     Route: 065
  2. CIPROFLOXACIN EXTENDED RELEASE [Interacting]
     Indication: URINARY TRACT INFECTION
     Dosage: 1000 MG, / DAY
     Route: 065
  3. CITALOPRAM HYDROBROMIDE [Interacting]
     Indication: DEPRESSION
     Dosage: 20 MG, / DAY
     Route: 065
  4. REBOXETINE [Interacting]
     Indication: DEPRESSION
     Dosage: 4 MG, / DAY
     Route: 065

REACTIONS (2)
  - DRUG INTERACTION [None]
  - SEROTONIN SYNDROME [None]
